FAERS Safety Report 7164242-7 (Version None)
Quarter: 2010Q4

REPORT INFORMATION
  Report Type: 
  Country: None (occurrence: None)
  Receive Date: 20101123
  Receipt Date: 20100920
  Transmission Date: 20110411
  Serious: No
  Sender: FDA-Public Use
  Company Number: 8052399

PATIENT
  Sex: Female
  Weight: 180 kg

DRUGS (4)
  1. CIMZIA [Suspect]
     Indication: CROHN'S DISEASE
     Dosage: 400 MG 1X/2 WEEKS, SUBCUTANEOUS
     Route: 058
     Dates: start: 20081008
  2. VICODIN [Concomitant]
  3. PERCOCET [Concomitant]
  4. CELEBREX [Concomitant]

REACTIONS (11)
  - ARTHRALGIA [None]
  - CHEST PAIN [None]
  - DIARRHOEA [None]
  - HAEMATOCHEZIA [None]
  - INJECTION SITE HAEMORRHAGE [None]
  - INJECTION SITE REACTION [None]
  - MUSCLE SPASMS [None]
  - MUSCLE TWITCHING [None]
  - NERVE INJURY [None]
  - NEURALGIA [None]
  - PAIN IN EXTREMITY [None]
